FAERS Safety Report 17406398 (Version 1)
Quarter: 2020Q1

REPORT INFORMATION
  Report Type: Spontaneous
  Country: US (occurrence: US)
  Receive Date: 20200211
  Receipt Date: 20200211
  Transmission Date: 20200409
  Serious: No
  Sender: FDA-Public Use
  Company Number: None

PATIENT
  Age: 83 Year
  Sex: Male
  Weight: 99 kg

DRUGS (1)
  1. BEOVU [Suspect]
     Active Substance: BROLUCIZUMAB-DBLL
     Indication: MACULAR DEGENERATION
     Dosage: ?          OTHER FREQUENCY:BI MONTHLY;?
     Route: 047
     Dates: start: 20191215, end: 20200207

REACTIONS (2)
  - Vitreous floaters [None]
  - Drug hypersensitivity [None]

NARRATIVE: CASE EVENT DATE: 20200201
